FAERS Safety Report 6910677-4 (Version None)
Quarter: 2010Q3

REPORT INFORMATION
  Report Type: 
  Country: None (occurrence: None)
  Receive Date: 20100806
  Receipt Date: 20100730
  Transmission Date: 20110219
  Serious: Yes (Other)
  Sender: FDA-Public Use
  Company Number: US-JNJFOC-20100800705

PATIENT
  Sex: Female
  Weight: 68.04 kg

DRUGS (7)
  1. FENTANYL CITRATE [Suspect]
     Indication: OSTEOARTHRITIS
     Route: 062
  2. FENTANYL CITRATE [Suspect]
     Indication: RHEUMATOID ARTHRITIS
     Route: 062
  3. FENTANYL CITRATE [Suspect]
     Indication: IRRITABLE BOWEL SYNDROME
     Route: 062
  4. FENTANYL-100 [Suspect]
     Indication: OSTEOARTHRITIS
     Route: 062
  5. FENTANYL-100 [Suspect]
     Indication: RHEUMATOID ARTHRITIS
     Route: 062
  6. FENTANYL-100 [Suspect]
     Indication: IRRITABLE BOWEL SYNDROME
     Route: 062
  7. DYAZIDE [Concomitant]
     Indication: HYPERTENSION
     Route: 048

REACTIONS (6)
  - APPLICATION SITE DISCOLOURATION [None]
  - APPLICATION SITE SCAB [None]
  - COLITIS [None]
  - DIARRHOEA [None]
  - GASTROOESOPHAGEAL REFLUX DISEASE [None]
  - WRONG TECHNIQUE IN DRUG USAGE PROCESS [None]
